FAERS Safety Report 5167940-X (Version None)
Quarter: 2006Q4

REPORT INFORMATION
  Report Type: 
  Country: None (occurrence: None)
  Receive Date: 20061208
  Receipt Date: 20051028
  Transmission Date: 20070319
  Serious: No
  Sender: FDA-Public Use
  Company Number: US-GLAXOSMITHKLINE-A0580116A

PATIENT
  Age: 84 Year
  Sex: Female

DRUGS (6)
  1. AVANDAMET [Suspect]
     Dosage: 1TAB TWICE PER DAY
     Route: 048
  2. AVANDIA [Suspect]
     Dosage: 4MG PER DAY
     Route: 048
  3. DIOVAN [Concomitant]
  4. AMARYL [Concomitant]
  5. LANTUS [Concomitant]
  6. ATACAND [Concomitant]

REACTIONS (1)
  - BLOOD GLUCOSE INCREASED [None]
